FAERS Safety Report 8916011 (Version 1)
Quarter: 2012Q4

REPORT INFORMATION
  Report Type: 
  Country: CO (occurrence: CO)
  Receive Date: 20121119
  Receipt Date: 20121119
  Transmission Date: 20130627
  Serious: Yes (Other)
  Sender: FDA-Public Use
  Company Number: CO-COVIDIEN/TYCO HEALTHCARE/MALLINCKRODT-T201204054

PATIENT
  Age: 19 Year
  Sex: Female
  Weight: 67 kg

DRUGS (1)
  1. OPTIRAY [Suspect]
     Indication: COMPUTERISED TOMOGRAM
     Dosage: 75 ml, single
     Route: 042

REACTIONS (2)
  - Cough [Recovering/Resolving]
  - Rash [Recovering/Resolving]
